FAERS Safety Report 18024778 (Version 1)
Quarter: 2020Q3

REPORT INFORMATION
  Report Type: Spontaneous
  Country: US (occurrence: US)
  Receive Date: 20200715
  Receipt Date: 20200715
  Transmission Date: 20201103
  Serious: Yes (Hospitalization)
  Sender: FDA-Public Use
  Company Number: None

PATIENT
  Age: 56 Year
  Sex: Male

DRUGS (8)
  1. KETOROLAC [Concomitant]
     Active Substance: KETOROLAC TROMETHAMINE
  2. ENBREL [Suspect]
     Active Substance: ETANERCEPT
     Indication: RHEUMATOID ARTHRITIS
     Dosage: ?          OTHER FREQUENCY:EVERY WEEK;?
     Route: 058
     Dates: start: 20190417
  3. OXYCODONE [Concomitant]
     Active Substance: OXYCODONE
  4. GABAPENTIN. [Concomitant]
     Active Substance: GABAPENTIN
  5. FOLIC ACID. [Concomitant]
     Active Substance: FOLIC ACID
  6. ZOLPIDEM [Concomitant]
     Active Substance: ZOLPIDEM TARTRATE
  7. PROMETHAZINE [Concomitant]
     Active Substance: PROMETHAZINE HYDROCHLORIDE
  8. METHOTREXATE. [Concomitant]
     Active Substance: METHOTREXATE

REACTIONS (3)
  - Nephrolithiasis [None]
  - Therapy interrupted [None]
  - Pain [None]
